FAERS Safety Report 9017273 (Version 4)
Quarter: 2013Q4

REPORT INFORMATION
  Report Type: Spontaneous
  Country: GB (occurrence: GB)
  Receive Date: 20130117
  Receipt Date: 20131015
  Transmission Date: 20140711
  Serious: Yes (Other)
  Sender: FDA-Public Use
  Company Number: GB-PFIZER INC-2013015826

PATIENT
  Age: 30 Year
  Sex: Female
  Weight: 68.5 kg

DRUGS (9)
  1. VENLAFAXINE HCL [Suspect]
     Indication: ANXIETY
     Dosage: 225 MG, 1X/DAY
     Route: 048
  2. VENLAFAXINE HCL [Suspect]
     Indication: DEPRESSION
  3. PROPRANOLOL [Suspect]
     Indication: ANXIETY
     Dosage: 80 MG, UNK
     Route: 048
  4. PROPRANOLOL [Suspect]
     Indication: DEPRESSION
  5. AMITRIPTYLINE [Suspect]
     Indication: ANXIETY
     Dosage: 20 MG, UNK
     Route: 048
  6. AMITRIPTYLINE [Suspect]
     Indication: DEPRESSION
  7. ZOPICLONE [Suspect]
     Indication: ANXIETY
     Dosage: 7.5 MG, UNK
     Route: 048
  8. ZOPICLONE [Suspect]
     Indication: DEPRESSION
  9. DULOXETINE [Concomitant]
     Route: 050

REACTIONS (3)
  - Premature separation of placenta [Unknown]
  - Abdominal pain [Unknown]
  - Foetal death [Unknown]
